FAERS Safety Report 18068665 (Version 1)
Quarter: 2020Q3

REPORT INFORMATION
  Report Type: Spontaneous
  Country: US (occurrence: US)
  Receive Date: 20200725
  Receipt Date: 20200725
  Transmission Date: 20201103
  Serious: No
  Sender: FDA-Public Use
  Company Number: US-B.I. PHARMACEUTICALS,INC./RIDGEFIELD-2020-BI-036665

PATIENT
  Age: 11 Year
  Sex: Male
  Weight: 52.16 kg

DRUGS (40)
  1. SERTRALINE [Concomitant]
     Active Substance: SERTRALINE HYDROCHLORIDE
     Indication: ANXIETY
     Route: 065
  2. SERTRALINE [Concomitant]
     Active Substance: SERTRALINE HYDROCHLORIDE
     Indication: TIC
  3. FENEXAN [Concomitant]
     Indication: ATTENTION DEFICIT HYPERACTIVITY DISORDER
  4. PAXIL [Concomitant]
     Active Substance: PAROXETINE HYDROCHLORIDE
     Indication: ATTENTION DEFICIT HYPERACTIVITY DISORDER
  5. VISTARIL [Concomitant]
     Active Substance: HYDROXYZINE PAMOATE
     Indication: TOURETTE^S DISORDER
     Route: 065
  6. ZITHROMAX [Concomitant]
     Active Substance: AZITHROMYCIN DIHYDRATE
     Indication: TOURETTE^S DISORDER
     Route: 065
  7. ADDERALL [Concomitant]
     Active Substance: AMPHETAMINE ASPARTATE\AMPHETAMINE SULFATE\DEXTROAMPHETAMINE SACCHARATE\DEXTROAMPHETAMINE SULFATE
     Indication: ATTENTION DEFICIT HYPERACTIVITY DISORDER
     Route: 065
  8. GEODON [Concomitant]
     Active Substance: ZIPRASIDONE HYDROCHLORIDE\ZIPRASIDONE MESYLATE
     Indication: TOURETTE^S DISORDER
     Route: 065
  9. RISPERDAL [Concomitant]
     Active Substance: RISPERIDONE
     Indication: TOURETTE^S DISORDER
     Route: 065
  10. BUSPAR [Concomitant]
     Active Substance: BUSPIRONE HYDROCHLORIDE
     Indication: TOURETTE^S DISORDER
     Route: 065
  11. AMANTADINE. [Concomitant]
     Active Substance: AMANTADINE HYDROCHLORIDE
     Indication: TOURETTE^S DISORDER
     Route: 065
  12. AMANTADINE. [Concomitant]
     Active Substance: AMANTADINE HYDROCHLORIDE
     Indication: ATTENTION DEFICIT HYPERACTIVITY DISORDER
  13. ATOMOXETINE. [Concomitant]
     Active Substance: ATOMOXETINE HYDROCHLORIDE
     Indication: ATTENTION DEFICIT HYPERACTIVITY DISORDER
     Route: 065
  14. MONTELUKAST [Concomitant]
     Active Substance: MONTELUKAST SODIUM
     Indication: PRODUCT USED FOR UNKNOWN INDICATION
     Route: 065
  15. FOCALIN XR ER [Concomitant]
     Indication: ATTENTION DEFICIT HYPERACTIVITY DISORDER
     Route: 065
  16. INTUNIV [Concomitant]
     Active Substance: GUANFACINE HYDROCHLORIDE
     Indication: TOURETTE^S DISORDER
     Route: 065
  17. CELEXA [Concomitant]
     Active Substance: CITALOPRAM HYDROBROMIDE
     Indication: TOURETTE^S DISORDER
     Route: 065
  18. RISPERDAL [Concomitant]
     Active Substance: RISPERIDONE
     Indication: ATTENTION DEFICIT HYPERACTIVITY DISORDER
  19. KEFLEX [Concomitant]
     Active Substance: CEPHALEXIN
     Indication: TOURETTE^S DISORDER
     Route: 065
  20. CATAPRES [Suspect]
     Active Substance: CLONIDINE HYDROCHLORIDE
     Indication: TOURETTE^S DISORDER
     Route: 065
  21. LEVOCETIRIZINE [Concomitant]
     Active Substance: LEVOCETIRIZINE
     Indication: PRODUCT USED FOR UNKNOWN INDICATION
     Route: 065
  22. AZELASTINE;FLUTICASONE [Concomitant]
     Indication: PRODUCT USED FOR UNKNOWN INDICATION
     Route: 065
  23. INTUNIV [Concomitant]
     Active Substance: GUANFACINE HYDROCHLORIDE
     Indication: ATTENTION DEFICIT HYPERACTIVITY DISORDER
  24. PAXIL [Concomitant]
     Active Substance: PAROXETINE HYDROCHLORIDE
     Indication: TOURETTE^S DISORDER
     Route: 065
  25. ABILIFY [Concomitant]
     Active Substance: ARIPIPRAZOLE
     Indication: ATTENTION DEFICIT HYPERACTIVITY DISORDER
  26. BUSPAR [Concomitant]
     Active Substance: BUSPIRONE HYDROCHLORIDE
     Indication: ATTENTION DEFICIT HYPERACTIVITY DISORDER
  27. ABILIFY [Concomitant]
     Active Substance: ARIPIPRAZOLE
     Indication: TOURETTE^S DISORDER
     Route: 065
  28. GEODON [Concomitant]
     Active Substance: ZIPRASIDONE HYDROCHLORIDE\ZIPRASIDONE MESYLATE
     Indication: ATTENTION DEFICIT HYPERACTIVITY DISORDER
  29. PREDNISOLONE. [Concomitant]
     Active Substance: PREDNISOLONE
     Indication: TOURETTE^S DISORDER
     Route: 065
  30. RITALIN LA [Concomitant]
     Active Substance: METHYLPHENIDATE HYDROCHLORIDE
     Indication: ATTENTION DEFICIT HYPERACTIVITY DISORDER
     Route: 065
  31. TRILEPTAL [Concomitant]
     Active Substance: OXCARBAZEPINE
     Indication: TOURETTE^S DISORDER
     Route: 065
  32. ZITHROMAX [Concomitant]
     Active Substance: AZITHROMYCIN DIHYDRATE
     Indication: ATTENTION DEFICIT HYPERACTIVITY DISORDER
  33. VALBENAZINE [Suspect]
     Active Substance: VALBENAZINE
     Indication: PRODUCT USED FOR UNKNOWN INDICATION
     Route: 065
  34. ALBUTEROL [SALBUTAMOL] [Concomitant]
     Active Substance: ALBUTEROL
     Indication: PRODUCT USED FOR UNKNOWN INDICATION
     Route: 065
  35. CELEXA [Concomitant]
     Active Substance: CITALOPRAM HYDROBROMIDE
     Indication: ATTENTION DEFICIT HYPERACTIVITY DISORDER
  36. TRILEPTAL [Concomitant]
     Active Substance: OXCARBAZEPINE
     Indication: ATTENTION DEFICIT HYPERACTIVITY DISORDER
  37. FENEXAN [Concomitant]
     Indication: TOURETTE^S DISORDER
     Route: 065
  38. VISTARIL [Concomitant]
     Active Substance: HYDROXYZINE PAMOATE
     Indication: ATTENTION DEFICIT HYPERACTIVITY DISORDER
  39. KEFLEX [Concomitant]
     Active Substance: CEPHALEXIN
     Indication: ATTENTION DEFICIT HYPERACTIVITY DISORDER
  40. PREDNISOLONE. [Concomitant]
     Active Substance: PREDNISOLONE
     Indication: ATTENTION DEFICIT HYPERACTIVITY DISORDER

REACTIONS (6)
  - Tardive dyskinesia [Unknown]
  - Irritability [Unknown]
  - Somnolence [Unknown]
  - Drug ineffective [Unknown]
  - Anxiety [Not Recovered/Not Resolved]
  - Tic [Recovered/Resolved]
